FAERS Safety Report 6398266-4 (Version None)
Quarter: 2009Q4

REPORT INFORMATION
  Report Type: 
  Country: None (occurrence: None)
  Receive Date: 20091007
  Receipt Date: 20090924
  Transmission Date: 20100525
  Serious: Yes (Death)
  Sender: FDA-Public Use
  Company Number: CERZ-1000893

PATIENT
  Age: 10 Year
  Sex: Male
  Weight: 24.6 kg

DRUGS (7)
  1. CEREZYME [Suspect]
     Indication: GAUCHER'S DISEASE
     Dosage: 2400 IU, Q2W, INTRAVENOUS
     Route: 042
     Dates: start: 19991222, end: 20090812
  2. CEREZYME [Suspect]
  3. BACLOFEN [Concomitant]
  4. SINEMET [Concomitant]
  5. VALPROATE SODIUM [Concomitant]
  6. CLOBAZAM (CLOBAZAM) [Concomitant]
  7. DIAZEPAM [Concomitant]

REACTIONS (1)
  - STATUS EPILEPTICUS [None]
